FAERS Safety Report 8780401 (Version 2)
Quarter: 2012Q4

REPORT INFORMATION
  Report Type: Spontaneous
  Country: GB (occurrence: None)
  Receive Date: 20120830
  Receipt Date: 20120921
  Transmission Date: 20130627
  Serious: Yes (Other)
  Sender: FDA-Public Use
  Company Number: 2012AP002533

PATIENT
  Age: 61 Year
  Sex: Female

DRUGS (6)
  1. AMLODIPINE (AMLODIPINE) [Suspect]
     Indication: DRUG USE FOR UNKNOWN INDICATION
  2. PERINDOPRIL [Suspect]
  3. ATORVASTATIN (ATORVASTATIN) [Suspect]
     Route: 048
     Dates: start: 20120710, end: 20120731
  4. ZOCOR (SIMVASTATIN) [Suspect]
     Route: 048
     Dates: start: 20120310
  5. ASPIRIN (ACETYLSALICYLIC ACID) [Suspect]
  6. DIPYRIDAMOLE [Suspect]

REACTIONS (3)
  - Abdominal pain [None]
  - Renal disorder [None]
  - Myalgia [None]
